FAERS Safety Report 9228706 (Version 3)
Quarter: 2014Q1

REPORT INFORMATION
  Report Type: Report from Study
  Country: FR (occurrence: FR)
  Receive Date: 20130412
  Receipt Date: 20140102
  Transmission Date: 20141002
  Serious: Yes (Hospitalization)
  Sender: FDA-Public Use
  Company Number: FR-EISAI INC-E7389-03717-CLI-FR

PATIENT
  Age: 56 Year
  Sex: Female

DRUGS (12)
  1. E7389 (BOLD) [Suspect]
     Indication: BREAST CANCER
     Route: 041
     Dates: start: 20120130
  2. OXYCONTIN [Concomitant]
     Indication: PAIN
     Route: 048
  3. OXYNORM [Concomitant]
     Route: 048
  4. DOLIPRANE [Concomitant]
     Indication: PAIN
     Route: 048
  5. ANAFRANIL [Concomitant]
     Route: 048
  6. ANAFRANIL [Concomitant]
     Route: 048
  7. RIVOTRIL [Concomitant]
     Route: 048
  8. LYRICA [Concomitant]
     Route: 048
  9. KEPPRA [Concomitant]
  10. AVLOCARDYL [Concomitant]
  11. LEVOTHYROXINE [Concomitant]
  12. FORLAX [Concomitant]

REACTIONS (1)
  - Pneumonia [Recovered/Resolved]
